FAERS Safety Report 21234097 (Version 1)
Quarter: 2022Q3

REPORT INFORMATION
  Report Type: Spontaneous
  Country: US (occurrence: US)
  Receive Date: 20220819
  Receipt Date: 20220819
  Transmission Date: 20221027
  Serious: Yes (Hospitalization)
  Sender: FDA-Public Use
  Company Number: US-ELI_LILLY_AND_COMPANY-US202208004925

PATIENT
  Age: 35 Year
  Sex: Female
  Weight: 74.4 kg

DRUGS (7)
  1. EMGALITY [Suspect]
     Active Substance: GALCANEZUMAB-GNLM
     Indication: Migraine
     Dosage: 120 MG, MONTHLY (1/M)
     Route: 058
     Dates: start: 20220218
  2. AJOVY [Suspect]
     Active Substance: FREMANEZUMAB-VFRM
     Indication: Product used for unknown indication
     Dosage: UNK UNK, UNKNOWN
     Route: 065
  3. LINZESS [Concomitant]
     Active Substance: LINACLOTIDE
     Indication: Irritable bowel syndrome
     Dosage: 290 UG, DAILY
     Route: 048
  4. LUBIPROSTONE [Concomitant]
     Active Substance: LUBIPROSTONE
     Indication: Irritable bowel syndrome
     Dosage: 24 UG, BID
     Route: 048
  5. CELLCEPT [Concomitant]
     Active Substance: MYCOPHENOLATE MOFETIL
     Indication: Transplant rejection
  6. PROGRAF [Concomitant]
     Active Substance: TACROLIMUS
     Indication: Transplant rejection
     Dosage: 5 DOSAGE FORM, (3 CAPSULES EVERY MORNING AND 2 EVERY EVENING)
     Route: 048
  7. PREDNISOLONE [Concomitant]
     Active Substance: PREDNISOLONE
     Indication: Transplant rejection
     Dosage: 1 DOSAGE FORM, DAILY
     Route: 048

REACTIONS (1)
  - Asthenia [Recovering/Resolving]

NARRATIVE: CASE EVENT DATE: 20220529
